FAERS Safety Report 9234808 (Version 1)
Quarter: 2013Q2

REPORT INFORMATION
  Report Type: Not Available
  Country: GB (occurrence: GB)
  Receive Date: 20130416
  Receipt Date: 20130416
  Transmission Date: 20140414
  Serious: Yes (Other)
  Sender: FDA-Public Use
  Company Number: GB-PURDUE-GBR-2013-0013664

PATIENT
  Age: 71 Year
  Sex: Male
  Weight: 91 kg

DRUGS (6)
  1. BUTRANS [Suspect]
     Indication: PAIN
     Dosage: 10 MCG, Q1H
     Route: 062
     Dates: start: 20130319, end: 20130319
  2. ATORVASTATIN [Concomitant]
     Dosage: 40 MG, DAILY
  3. LEVEMIR [Concomitant]
  4. LISINOPRIL [Concomitant]
     Dosage: 2.5 MG, DAILY
  5. METFORMIN [Concomitant]
     Dosage: 1000 MG, DAILY
  6. METOPROLOL [Concomitant]
     Dosage: 100 MG, BID

REACTIONS (2)
  - Skin reaction [Recovered/Resolved]
  - Application site pain [Recovered/Resolved]
